FAERS Safety Report 8575701 (Version 7)
Quarter: 2013Q1

REPORT INFORMATION
  Report Type: Spontaneous
  Country: US (occurrence: US)
  Receive Date: 20120523
  Receipt Date: 20130107
  Transmission Date: 20140127
  Serious: Yes (Hospitalization)
  Sender: FDA-Public Use
  Company Number: US-GLAXOSMITHKLINE-A0933149A

PATIENT
  Age: 49 Year
  Sex: Female
  Weight: 157.3 kg

DRUGS (1)
  1. AVANDIA [Suspect]
     Indication: DIABETES MELLITUS
     Dosage: 4MG PER DAY
     Route: 048
     Dates: start: 200605, end: 200806

REACTIONS (4)
  - Cardiac failure congestive [Not Recovered/Not Resolved]
  - Hypertension [Unknown]
  - Heart rate increased [Unknown]
  - Hyperhidrosis [Unknown]
